FAERS Safety Report 6527278-2 (Version None)
Quarter: 2009Q4

REPORT INFORMATION
  Report Type: 
  Country: None (occurrence: None)
  Receive Date: 20091230
  Receipt Date: 20091217
  Transmission Date: 20100525
  Serious: Yes (Other)
  Sender: FDA-Public Use
  Company Number: PAR_03121_2009

PATIENT
  Sex: Male

DRUGS (12)
  1. IBUPROFEN [Suspect]
     Indication: DRUG USE FOR UNKNOWN INDICATION
     Dosage: (1800 MG)
  2. XARELTO (XARELTO-RIVAROXABAN) (NOT SPECIFIED) [Suspect]
     Indication: THROMBOSIS PROPHYLAXIS
     Dosage: (10 MG)
     Dates: start: 20090209, end: 20090210
  3. EMBOLEX [Concomitant]
  4. PANTOPRAZOLE [Concomitant]
  5. ANIFLAZYM [Concomitant]
  6. AMARYL [Concomitant]
  7. CONCOR [Concomitant]
  8. BENALAPRIL [Concomitant]
  9. CEFUROXIME [Concomitant]
  10. BEZAFIBRATE [Concomitant]
  11. FENOFIBRATE [Concomitant]
  12. GEMFIBROZIL [Concomitant]

REACTIONS (3)
  - POST PROCEDURAL HAEMORRHAGE [None]
  - PROTHROMBIN TIME PROLONGED [None]
  - URETHRAL HAEMORRHAGE [None]
